FAERS Safety Report 5238261-1 (Version None)
Quarter: 2007Q1

REPORT INFORMATION
  Report Type: 
  Country: None (occurrence: None)
  Receive Date: 20070215
  Receipt Date: 20070212
  Transmission Date: 20070707
  Serious: Yes (Hospitalization, Other)
  Sender: FDA-Public Use
  Company Number: US-BRISTOL-MYERS SQUIBB COMPANY-13631221

PATIENT
  Age: 52 Year
  Sex: Female

DRUGS (5)
  1. COUMADIN [Suspect]
     Indication: THROMBOSIS
     Dates: start: 20030101
  2. PLAVIX [Suspect]
     Indication: ANTICOAGULANT THERAPY
     Dates: start: 20030101
  3. ATACAND [Concomitant]
  4. NEXIUM [Concomitant]
  5. HORMONE THERAPY [Concomitant]

REACTIONS (6)
  - ANKLE FRACTURE [None]
  - DECUBITUS ULCER [None]
  - FALL [None]
  - HAEMORRHAGE [None]
  - LOSS OF CONSCIOUSNESS [None]
  - TRANSIENT ISCHAEMIC ATTACK [None]
